FAERS Safety Report 5106124-8 (Version None)
Quarter: 2006Q3

REPORT INFORMATION
  Report Type: 
  Country: None (occurrence: None)
  Receive Date: 20060912
  Receipt Date: 20060905
  Transmission Date: 20061208
  Serious: Yes (Hospitalization, Other)
  Sender: FDA-Public Use
  Company Number: 2005BH000072

PATIENT
  Age: 51 Year
  Sex: Female

DRUGS (1)
  1. GENTAMICIN [Suspect]
     Indication: CELLULITIS

REACTIONS (10)
  - CELLULITIS [None]
  - ELECTROCARDIOGRAM QT PROLONGED [None]
  - HYPOCALCAEMIA [None]
  - HYPOKALAEMIA [None]
  - HYPOMAGNESAEMIA [None]
  - METABOLIC ALKALOSIS [None]
  - MUSCULAR WEAKNESS [None]
  - NEPHROPATHY TOXIC [None]
  - PARAESTHESIA [None]
  - TETANY [None]
